FAERS Safety Report 26041455 (Version 1)
Quarter: 2025Q4

REPORT INFORMATION
  Report Type: Spontaneous
  Country: US (occurrence: US)
  Receive Date: 20251113
  Receipt Date: 20251113
  Transmission Date: 20260117
  Serious: No
  Sender: ABBVIE
  Company Number: US-ABBVIE-6546705

PATIENT
  Age: 46 Year
  Sex: Female

DRUGS (1)
  1. FOSCARBIDOPA\FOSLEVODOPA [Suspect]
     Active Substance: FOSCARBIDOPA\FOSLEVODOPA
     Indication: Product used for unknown indication
     Dosage: BASE: 0.30 ML/H?HIGH: 0.32 ML/H?NIGHTTIME: 0.22 ML/H
     Route: 058
     Dates: start: 202506

REACTIONS (3)
  - Infusion site discolouration [Recovering/Resolving]
  - Infusion site swelling [Recovering/Resolving]
  - Infusion site reaction [Recovering/Resolving]

NARRATIVE: CASE EVENT DATE: 20250101
